FAERS Safety Report 6785968-0 (Version None)
Quarter: 2010Q2

REPORT INFORMATION
  Report Type: 
  Country: None (occurrence: None)
  Receive Date: 20100622
  Receipt Date: 20100622
  Transmission Date: 20101027
  Serious: Yes (Other)
  Sender: FDA-Public Use
  Company Number: None

PATIENT

DRUGS (2)
  1. ROCURONIUM BROMIDE [Suspect]
     Indication: ANAESTHESIA PROCEDURE
     Dosage: 140MG OVER 1 HR 15MIN IV, THIS EVENT; 60MG OVER 1 HR IV, THIS EVENT
     Route: 042
     Dates: start: 20100504, end: 20100504
  2. ROCURONIUM BROMIDE [Suspect]
     Indication: ANAESTHESIA PROCEDURE
     Dosage: 140MG OVER 1 HR 15MIN IV, THIS EVENT; 60MG OVER 1 HR IV, THIS EVENT
     Route: 042
     Dates: start: 20100519, end: 20100519

REACTIONS (1)
  - THERAPEUTIC RESPONSE DECREASED [None]
